FAERS Safety Report 12692610 (Version 1)
Quarter: 2016Q3

REPORT INFORMATION
  Report Type: Report from Study
  Country: US (occurrence: US)
  Receive Date: 20160829
  Receipt Date: 20160829
  Transmission Date: 20161109
  Serious: Yes (Other)
  Sender: FDA-Public Use
  Company Number: US-BAUSCH-BL-2016-020292

PATIENT
  Age: 24 Year
  Sex: Male

DRUGS (8)
  1. FLUOCINOLONE ACETATE [Suspect]
     Active Substance: FLUOCINOLONE ACETONIDE
     Indication: AUTOIMMUNE RETINOPATHY
     Route: 065
  2. FLUOCINOLONE ACETATE [Suspect]
     Active Substance: FLUOCINOLONE ACETONIDE
     Indication: GLAUCOMA
  3. BRIMONIDINE [Suspect]
     Active Substance: BRIMONIDINE TARTRATE
     Indication: AUTOIMMUNE RETINOPATHY
     Route: 065
  4. DORZOLAMIDE AND TIMOLOL [Suspect]
     Active Substance: DORZOLAMIDE\TIMOLOL
     Indication: AUTOIMMUNE RETINOPATHY
     Route: 065
  5. DORZOLAMIDE AND TIMOLOL [Suspect]
     Active Substance: DORZOLAMIDE\TIMOLOL
     Indication: GLAUCOMA
  6. LATANOPROST. [Suspect]
     Active Substance: LATANOPROST
     Indication: GLAUCOMA
  7. BRIMONIDINE [Suspect]
     Active Substance: BRIMONIDINE TARTRATE
     Indication: GLAUCOMA
  8. LATANOPROST. [Suspect]
     Active Substance: LATANOPROST
     Indication: AUTOIMMUNE RETINOPATHY
     Route: 065

REACTIONS (5)
  - Drug effect incomplete [Unknown]
  - Retinal degeneration [Unknown]
  - Fibrosis [Recovering/Resolving]
  - Intraocular pressure decreased [Recovering/Resolving]
  - Visual acuity reduced [Unknown]
